FAERS Safety Report 10471803 (Version 1)
Quarter: 2014Q3

REPORT INFORMATION
  Report Type: Spontaneous
  Country: BR (occurrence: BR)
  Receive Date: 20140924
  Receipt Date: 20140924
  Transmission Date: 20150326
  Serious: Yes (Other)
  Sender: FDA-Public Use
  Company Number: PHHY2014BR124027

PATIENT
  Age: 0 Day
  Sex: Female

DRUGS (1)
  1. TRILEPTAL [Suspect]
     Active Substance: OXCARBAZEPINE
     Dosage: TRILEPAL, FOETAL EXPOSURE VIA FATHER
     Route: 065

REACTIONS (2)
  - Exposure via father [Unknown]
  - Premature baby [Unknown]

NARRATIVE: CASE EVENT DATE: 20101002
